FAERS Safety Report 4401204-4 (Version None)
Quarter: 2004Q3

REPORT INFORMATION
  Report Type: 
  Country: None (occurrence: None)
  Receive Date: 20040907
  Receipt Date: 20031218
  Transmission Date: 20050211
  Serious: No
  Sender: FDA-Public Use
  Company Number: US-BRISTOL-MYERS SQUIBB COMPANY-12461190

PATIENT
  Age: 85 Year
  Sex: Male
  Weight: 86 kg

DRUGS (6)
  1. COUMADIN [Suspect]
     Indication: CARDIAC VALVE DISEASE
     Route: 048
  2. DIGOXIN [Concomitant]
  3. ZAROXOLYN [Concomitant]
  4. POTASSIUM [Concomitant]
  5. HUMULIN 70/30 [Concomitant]
  6. COLCHICINE [Concomitant]

REACTIONS (1)
  - RASH [None]
